FAERS Safety Report 16822716 (Version 1)
Quarter: 2019Q3

REPORT INFORMATION
  Report Type: Spontaneous
  Country: US (occurrence: US)
  Receive Date: 20190918
  Receipt Date: 20190918
  Transmission Date: 20191005
  Serious: Yes (Other)
  Sender: FDA-Public Use
  Company Number: US-JNJFOC-20190912664

PATIENT
  Age: 8 Decade
  Sex: Female

DRUGS (4)
  1. XARELTO [Suspect]
     Active Substance: RIVAROXABAN
     Indication: PRODUCT USED FOR UNKNOWN INDICATION
     Route: 048
     Dates: start: 201808
  2. LEVOTHYROXINE. [Concomitant]
     Active Substance: LEVOTHYROXINE
  3. CELEBREX [Concomitant]
     Active Substance: CELECOXIB
  4. PROZAC [Concomitant]
     Active Substance: FLUOXETINE HYDROCHLORIDE

REACTIONS (5)
  - Spinal fracture [Not Recovered/Not Resolved]
  - Upper limb fracture [Recovered/Resolved]
  - Fall [Unknown]
  - Visual impairment [Not Recovered/Not Resolved]
  - Calcinosis [Unknown]
